FAERS Safety Report 6905817-7 (Version None)
Quarter: 2010Q3

REPORT INFORMATION
  Report Type: 
  Country: None (occurrence: None)
  Receive Date: 20100804
  Receipt Date: 20100802
  Transmission Date: 20110219
  Serious: Yes (Death, Other)
  Sender: FDA-Public Use
  Company Number: US-JNJCH-9932143

PATIENT
  Age: 14 Year
  Sex: Male

DRUGS (5)
  1. ZYRTEC [Suspect]
     Indication: EXPOSURE TO TOXIC AGENT
     Route: 048
     Dates: start: 19990705, end: 19990709
  2. ZYRTEC [Suspect]
     Indication: HYPERSENSITIVITY
  3. DIPHENHYDRAMINE [Suspect]
     Indication: HYPERSENSITIVITY
     Route: 065
  4. PREDNISONE [Suspect]
     Indication: HYPERSENSITIVITY
     Route: 048
  5. DECADRON [Concomitant]
     Route: 048

REACTIONS (4)
  - COMA [None]
  - CONVULSION [None]
  - DEATH [None]
  - HYPERSENSITIVITY [None]
